FAERS Safety Report 9105481 (Version 1)
Quarter: 2013Q1

REPORT INFORMATION
  Report Type: Spontaneous
  Country: US (occurrence: US)
  Receive Date: 20130220
  Receipt Date: 20130220
  Transmission Date: 20140127
  Serious: Yes (Other)
  Sender: FDA-Public Use
  Company Number: US-ELI_LILLY_AND_COMPANY-US201302002122

PATIENT
  Sex: Female

DRUGS (12)
  1. CYMBALTA [Suspect]
     Indication: FIBROMYALGIA
     Dosage: 60 MG, QD
     Dates: end: 20130131
  2. TOPIRAMAT [Concomitant]
     Dosage: 50 MG, BID
  3. MELOXICAM [Concomitant]
     Dosage: 15 MG, QD
  4. LOSARTAN [Concomitant]
     Dosage: 50 MG, QD
  5. CLONAZEPAM [Concomitant]
     Dosage: 3 MG, EACH EVENING
  6. FUROSEMIDE [Concomitant]
     Dosage: 20 MG, UNKNOWN
  7. LISINOPRIL [Concomitant]
  8. HYDROCODONE [Concomitant]
     Dosage: 5 MG, PRN
  9. TAMOXIFEN [Concomitant]
  10. NEXIUM [Concomitant]
  11. PREVACID [Concomitant]
  12. PRISTIQ [Concomitant]
     Indication: HOT FLUSH

REACTIONS (21)
  - Swollen tongue [Recovered/Resolved]
  - Obstructive airways disorder [Recovered/Resolved]
  - Dysarthria [Recovered/Resolved]
  - Macular degeneration [Unknown]
  - Thirst [Recovered/Resolved]
  - Nervousness [Not Recovered/Not Resolved]
  - Stress [Unknown]
  - Neuropathy peripheral [Unknown]
  - Dysphagia [Unknown]
  - Blood potassium decreased [Unknown]
  - Bladder spasm [Unknown]
  - Nephrolithiasis [Unknown]
  - Cough [Unknown]
  - Dysphonia [Unknown]
  - Restless legs syndrome [Unknown]
  - Dizziness [Recovered/Resolved]
  - Nausea [Recovered/Resolved]
  - Weight increased [Unknown]
  - Rash [Recovered/Resolved]
  - Insomnia [Unknown]
  - Pruritus [Recovered/Resolved]
